FAERS Safety Report 5324849-6 (Version None)
Quarter: 2007Q2

REPORT INFORMATION
  Report Type: 
  Country: None (occurrence: None)
  Receive Date: 20070515
  Receipt Date: 20070509
  Transmission Date: 20071010
  Serious: Yes (Hospitalization)
  Sender: FDA-Public Use
  Company Number: US-JNJFOC-20051103220

PATIENT
  Sex: Male
  Weight: 59.3 kg

DRUGS (13)
  1. RISPERDAL [Suspect]
     Route: 048
  2. RISPERDAL [Suspect]
     Route: 048
  3. RISPERDAL [Suspect]
     Route: 048
  4. RISPERDAL [Suspect]
     Route: 048
  5. RISPERDAL [Suspect]
     Dosage: (1 MG TABLET): TOOK 0.5 TABLET IN MORNING AND AT 4 PM, AND 1 TABLET AT BEDTIME.
     Route: 048
  6. RISPERDAL [Suspect]
     Indication: ATTENTION DEFICIT/HYPERACTIVITY DISORDER
     Route: 048
  7. METHYLPHENIDATE HCL [Concomitant]
     Route: 048
  8. METHYLPHENIDATE HCL [Concomitant]
     Route: 048
  9. METHYLPHENIDATE HCL [Concomitant]
     Indication: ATTENTION DEFICIT/HYPERACTIVITY DISORDER
     Route: 048
  10. CLONIDINE [Concomitant]
     Dosage: (AT BEDTIME)
     Route: 048
  11. CLONIDINE [Concomitant]
     Route: 048
  12. PAXIL [Concomitant]
     Dosage: (EVERY MORNING)
     Route: 048
  13. PAXIL [Concomitant]
     Route: 048

REACTIONS (2)
  - DIABETES MELLITUS INSULIN-DEPENDENT [None]
  - DIABETIC KETOACIDOSIS [None]
